FAERS Safety Report 11348074 (Version 1)
Quarter: 2015Q3

REPORT INFORMATION
  Report Type: Spontaneous
  Country: US (occurrence: US)
  Receive Date: 20150803
  Receipt Date: 20150803
  Transmission Date: 20151125
  Serious: Yes (Other)
  Sender: FDA-Public Use
  Company Number: US-ELI_LILLY_AND_COMPANY-US200910006699

PATIENT
  Age: 37 Year
  Sex: Female

DRUGS (12)
  1. MOTRIN [Concomitant]
     Active Substance: IBUPROFEN
     Dosage: 400 MG, PRN
  2. ACCUPRIL [Concomitant]
     Active Substance: QUINAPRIL HYDROCHLORIDE
     Dosage: 5 MG, QD
  3. PHISOHEX [Concomitant]
     Active Substance: HEXACHLOROPHENE
     Dosage: 3 %, UNKNOWN
  4. WELLBUTRIN XL [Concomitant]
     Active Substance: BUPROPION HYDROCHLORIDE
     Dosage: 150 MG, QD
  5. VALIUM [Concomitant]
     Active Substance: DIAZEPAM
     Dosage: 10 MG, PRN
  6. ZOLOFT [Concomitant]
     Active Substance: SERTRALINE HYDROCHLORIDE
     Dosage: 200 MG, EACH MORNING
  7. ABILIFY [Concomitant]
     Active Substance: ARIPIPRAZOLE
     Dosage: 20 MG, EACH EVENING
  8. ZANTAC [Concomitant]
     Active Substance: RANITIDINE HYDROCHLORIDE
     Dosage: 150 MG, EACH EVENING
  9. DIAZEPAM. [Concomitant]
     Active Substance: DIAZEPAM
     Dosage: 15 MG, QD
  10. VISTARIL [Concomitant]
     Active Substance: HYDROXYZINE PAMOATE
     Dosage: 75 MG, QD
  11. HYDROCHLOORTHIAZIDE [Concomitant]
     Active Substance: HYDROCHLOROTHIAZIDE
     Dosage: 25 MG, QD
  12. ZYPREXA [Suspect]
     Active Substance: OLANZAPINE
     Dosage: 1 D/F, UNK

REACTIONS (4)
  - Type 2 diabetes mellitus [Unknown]
  - Diabetic ketoacidosis [Unknown]
  - Weight increased [Recovered/Resolved]
  - Hyperlipidaemia [Unknown]

NARRATIVE: CASE EVENT DATE: 20061218
